FAERS Safety Report 8445335 (Version 2)
Quarter: 2012Q4

REPORT INFORMATION
  Report Type: 
  Country: FR (occurrence: FR)
  Receive Date: 20120307
  Receipt Date: 20120914
  Transmission Date: 20130627
  Serious: Yes (Hospitalization)
  Sender: FDA-Public Use
  Company Number: FR-ROCHE-1044402

PATIENT
  Age: 58 Year
  Sex: Male

DRUGS (2)
  1. AVASTIN [Suspect]
     Indication: GLIOBLASTOMA
     Dosage: 10 mg/kg, D1-D15
     Route: 042
     Dates: start: 20111202, end: 20111216
  2. CAMPTO [Suspect]
     Indication: GLIOBLASTOMA
     Route: 042
     Dates: start: 20111202, end: 20111216

REACTIONS (2)
  - Pneumoperitoneum [Recovered/Resolved with Sequelae]
  - Diverticulum intestinal [Recovered/Resolved with Sequelae]
